FAERS Safety Report 18520484 (Version 3)
Quarter: 2021Q1

REPORT INFORMATION
  Report Type: Spontaneous
  Country: JP (occurrence: JP)
  Receive Date: 20201118
  Receipt Date: 20210108
  Transmission Date: 20210419
  Serious: Yes (Hospitalization, Other)
  Sender: FDA-Public Use
  Company Number: JP-ROCHE-2715885

PATIENT
  Age: 76 Year
  Sex: Male
  Weight: 54 kg

DRUGS (9)
  1. TAKECAB [Concomitant]
     Active Substance: VONOPRAZAN FUMARATE
     Dosage: DOSAGE IS UNCERTAIN.
     Route: 065
     Dates: start: 20200430
  2. AMLODIPINE [Concomitant]
     Active Substance: AMLODIPINE BESYLATE
     Dosage: DOSAGE IS UNCERTAIN.
     Route: 065
  3. CO?DIO [Concomitant]
     Active Substance: HYDROCHLOROTHIAZIDE\VALSARTAN
     Dosage: DOSAGE IS UNCERTAIN.
     Route: 065
  4. TECENTRIQ [Suspect]
     Active Substance: ATEZOLIZUMAB
     Route: 041
     Dates: start: 2020
  5. ATORVASTATIN [Concomitant]
     Active Substance: ATORVASTATIN
     Dosage: DOSAGE IS UNCERTAIN.
     Route: 065
  6. TECENTRIQ [Suspect]
     Active Substance: ATEZOLIZUMAB
     Indication: HEPATOCELLULAR CARCINOMA
     Route: 041
     Dates: start: 20201008, end: 2020
  7. AVASTIN [Suspect]
     Active Substance: BEVACIZUMAB
     Route: 041
     Dates: start: 202010
  8. BAYASPIRIN [Concomitant]
     Active Substance: ASPIRIN
     Dosage: DOSAGE IS UNCERTAIN.
     Route: 065
  9. AVASTIN [Suspect]
     Active Substance: BEVACIZUMAB
     Indication: HEPATOCELLULAR CARCINOMA
     Route: 041
     Dates: start: 20201008, end: 2020

REACTIONS (4)
  - Hepatic atrophy [Not Recovered/Not Resolved]
  - Ascites [Unknown]
  - Hepatic encephalopathy [Recovering/Resolving]
  - Vascular insufficiency [Recovered/Resolved]

NARRATIVE: CASE EVENT DATE: 20201019
